FAERS Safety Report 23240598 (Version 1)
Quarter: 2023Q4

REPORT INFORMATION
  Report Type: Spontaneous
  Country: US (occurrence: US)
  Receive Date: 20231129
  Receipt Date: 20231129
  Transmission Date: 20240110
  Serious: Yes (Hospitalization, Other)
  Sender: FDA-Public Use
  Company Number: US-AZURITY PHARMACEUTICALS, INC.-US-2023ARB004938

PATIENT
  Age: 79 Year
  Sex: Male

DRUGS (1)
  1. METHOTREXATE [Suspect]
     Active Substance: METHOTREXATE
     Indication: Immune-mediated myositis
     Dosage: UNK

REACTIONS (4)
  - Immunosuppression [Unknown]
  - Pneumocystis jirovecii pneumonia [Unknown]
  - Hypercalcaemia [Recovering/Resolving]
  - Mental status changes [Recovering/Resolving]
